FAERS Safety Report 9669414 (Version 2)
Quarter: 2014Q3

REPORT INFORMATION
  Report Type: Spontaneous
  Country: DE (occurrence: None)
  Receive Date: 20131101
  Receipt Date: 20140915
  Transmission Date: 20150326
  Serious: Yes (Other)
  Sender: FDA-Public Use
  Company Number: 1310-1358

PATIENT
  Age: 85 Year
  Sex: Female

DRUGS (1)
  1. EYLEA [Suspect]
     Active Substance: AFLIBERCEPT
     Indication: AGE-RELATED MACULAR DEGENERATION
     Dosage: UNK
     Dates: start: 20130227, end: 20140515

REACTIONS (7)
  - Headache [None]
  - Viral infection [None]
  - Discomfort [None]
  - Tendonitis [None]
  - Blindness [None]
  - Inappropriate schedule of drug administration [None]
  - Fatigue [None]

NARRATIVE: CASE EVENT DATE: 201304
